FAERS Safety Report 15669487 (Version 1)
Quarter: 2018Q4

REPORT INFORMATION
  Report Type: Spontaneous
  Country: US (occurrence: US)
  Receive Date: 20181129
  Receipt Date: 20181129
  Transmission Date: 20190205
  Serious: No
  Sender: FDA-Public Use
  Company Number: US-TEVA-2006-06838

PATIENT
  Age: 54 Year
  Sex: Female
  Weight: 63.5 kg

DRUGS (3)
  1. CLONAZEPAM. [Concomitant]
     Active Substance: CLONAZEPAM
  2. MIRTAZAPINE (WATSON LABORATORIES) [Suspect]
     Active Substance: MIRTAZAPINE
     Indication: DEPRESSION
     Dosage: 1  DAILY; 1 TABLET DAILY
     Route: 048
     Dates: start: 20040831, end: 200606
  3. MIRTAZAPINE (WATSON LABORATORIES) [Suspect]
     Active Substance: MIRTAZAPINE
     Dosage: .5  DAILY; 0.5 TAB DAILY
     Route: 048
     Dates: start: 200606

REACTIONS (6)
  - Hypersensitivity [Unknown]
  - Dizziness [Unknown]
  - Glossodynia [Unknown]
  - Ear discomfort [Unknown]
  - Hypoaesthesia oral [Unknown]
  - Insomnia [Unknown]

NARRATIVE: CASE EVENT DATE: 20060722
